FAERS Safety Report 22064954 (Version 2)
Quarter: 2023Q2

REPORT INFORMATION
  Report Type: Report from Study
  Country: US (occurrence: US)
  Receive Date: 20230306
  Receipt Date: 20230518
  Transmission Date: 20230722
  Serious: Yes (Hospitalization, Other)
  Sender: FDA-Public Use
  Company Number: US-BoehringerIngelheim-2023-BI-222826

PATIENT
  Age: 82 Year
  Sex: Male

DRUGS (2)
  1. GILOTRIF [Suspect]
     Active Substance: AFATINIB
     Indication: Lung neoplasm malignant
     Dates: start: 20170124
  2. GILOTRIF [Suspect]
     Active Substance: AFATINIB
     Indication: Prostate cancer

REACTIONS (2)
  - Pneumonia [Unknown]
  - Pneumonia aspiration [Unknown]
